FAERS Safety Report 8092534-6 (Version None)
Quarter: 2012Q1

REPORT INFORMATION
  Report Type: 
  Country: None (occurrence: None)
  Receive Date: 20120128
  Receipt Date: 20110827
  Transmission Date: 20120608
  Serious: No
  Sender: FDA-Public Use
  Company Number: US-ABBOTT-11P-163-0849843-00

PATIENT
  Age: 29 Year
  Sex: Male

DRUGS (2)
  1. HYDROCODONE BITARTRATE [Concomitant]
     Indication: PRODUCT USED FOR UNKNOWN INDICATION
     Dosage: 5/500
     Dates: start: 20050101
  2. HUMIRA [Suspect]
     Indication: PSORIASIS
     Dates: start: 20110812

REACTIONS (2)
  - INJECTION SITE PAIN [None]
  - RASH PAPULAR [None]
